FAERS Safety Report 9842980 (Version 2)
Quarter: 2014Q1

REPORT INFORMATION
  Report Type: Report from Study
  Country: JP (occurrence: JP)
  Receive Date: 20140124
  Receipt Date: 20140304
  Transmission Date: 20141002
  Serious: No
  Sender: FDA-Public Use
  Company Number: JP-TAKEDA-2014TJP000791

PATIENT
  Age: 59 Year
  Sex: Male
  Weight: 71.6 kg

DRUGS (3)
  1. ALOGLIPTIN [Suspect]
     Indication: TYPE 2 DIABETES MELLITUS
     Dosage: 25 MG, QD
     Route: 048
     Dates: start: 20120731, end: 20131009
  2. VOGLIBOSE [Concomitant]
     Indication: TYPE 2 DIABETES MELLITUS
     Dosage: 0.9 MG,1 DAYS
     Route: 048
     Dates: start: 20120721
  3. AMARYL [Concomitant]
     Indication: TYPE 2 DIABETES MELLITUS
     Dosage: 1 MG, 1 DAYS
     Route: 048
     Dates: start: 20120721

REACTIONS (1)
  - Diabetic nephropathy [Not Recovered/Not Resolved]
